FAERS Safety Report 20768642 (Version 1)
Quarter: 2022Q2

REPORT INFORMATION
  Report Type: Spontaneous
  Country: US (occurrence: US)
  Receive Date: 20220429
  Receipt Date: 20220429
  Transmission Date: 20220721
  Serious: No
  Sender: FDA-Public Use
  Company Number: US-SA-SAC20220428000268

PATIENT
  Age: 36 Year
  Sex: Female

DRUGS (6)
  1. DUPIXENT [Suspect]
     Active Substance: DUPILUMAB
     Indication: Dermatitis atopic
     Dosage: 300 MG, QOW
     Route: 058
     Dates: start: 20210503
  2. VITAMINS NOS [Concomitant]
     Active Substance: VITAMINS
  3. ALBUTEROL [Concomitant]
     Active Substance: ALBUTEROL
     Dosage: 1.25MG
  4. MOMETASONE [Concomitant]
     Active Substance: MOMETASONE
  5. VALACYCLOVIR [Concomitant]
     Active Substance: VALACYCLOVIR HYDROCHLORIDE
     Dosage: 500MG
  6. ZYRTEC [Concomitant]
     Active Substance: CETIRIZINE HYDROCHLORIDE
     Dosage: 500MG

REACTIONS (1)
  - Dermatitis atopic [Not Recovered/Not Resolved]
